FAERS Safety Report 14032693 (Version 1)
Quarter: 2017Q4

REPORT INFORMATION
  Report Type: Spontaneous
  Country: US (occurrence: US)
  Receive Date: 20171002
  Receipt Date: 20171002
  Transmission Date: 20180321
  Serious: No
  Sender: FDA-Public Use
  Company Number: US-PFIZER INC-2017421524

PATIENT
  Age: 72 Year
  Sex: Male
  Weight: 83.91 kg

DRUGS (1)
  1. ADVIL [Suspect]
     Active Substance: IBUPROFEN
     Indication: INFLAMMATION
     Dosage: 800MG ONE TIME A DAY. TABLETS
     Dates: start: 20170921, end: 20170928

REACTIONS (2)
  - Intentional product misuse [Unknown]
  - Bowel movement irregularity [Unknown]

NARRATIVE: CASE EVENT DATE: 20170921
